FAERS Safety Report 22366636 (Version 10)
Quarter: 2025Q1

REPORT INFORMATION
  Report Type: Spontaneous
  Country: US (occurrence: US)
  Receive Date: 20230525
  Receipt Date: 20250307
  Transmission Date: 20250409
  Serious: No
  Sender: BIOGEN
  Company Number: US-BIOGEN-2022BI01113430

PATIENT
  Age: 54 Year
  Sex: Female

DRUGS (12)
  1. VUMERITY [Suspect]
     Active Substance: DIROXIMEL FUMARATE
     Indication: Multiple sclerosis
     Dosage: STARTING DOSE
     Route: 050
  2. VUMERITY [Suspect]
     Active Substance: DIROXIMEL FUMARATE
     Dosage: TAKE 2 CAPSULES (462MG) BY MOUTH TWICE DAILY?ALSO MENTIONED AS 01-JUL-2021
     Route: 050
     Dates: start: 20210613
  3. CIPRO [Concomitant]
     Active Substance: CIPROFLOXACIN HYDROCHLORIDE
     Route: 050
  4. SINGULAIR [Concomitant]
     Active Substance: MONTELUKAST SODIUM
     Route: 050
  5. ZYRTEC [Concomitant]
     Active Substance: CETIRIZINE HYDROCHLORIDE
     Route: 050
  6. LIONS MANE [Concomitant]
     Route: 050
  7. PENICILLIN V [Concomitant]
     Active Substance: PENICILLIN V
     Route: 050
  8. VENTOLIN HFA [Concomitant]
     Active Substance: ALBUTEROL SULFATE
     Route: 050
  9. FLUTICASONE PROPIONATE [Concomitant]
     Active Substance: FLUTICASONE PROPIONATE
     Route: 050
  10. POTASSIUM [Concomitant]
     Active Substance: POTASSIUM
     Route: 050
  11. BACTRIM [Concomitant]
     Active Substance: SULFAMETHOXAZOLE\TRIMETHOPRIM
     Route: 050
  12. BACITRACIN [Concomitant]
     Active Substance: BACITRACIN
     Route: 050

REACTIONS (44)
  - Product dose omission in error [Unknown]
  - Tooth abscess [Not Recovered/Not Resolved]
  - Ligament sprain [Not Recovered/Not Resolved]
  - Blood cholesterol increased [Not Recovered/Not Resolved]
  - Back pain [Not Recovered/Not Resolved]
  - Diplopia [Not Recovered/Not Resolved]
  - Arthralgia [Not Recovered/Not Resolved]
  - Arthropathy [Unknown]
  - Cyst [Unknown]
  - Gastrooesophageal reflux disease [Unknown]
  - Multiple sclerosis [Unknown]
  - Eye disorder [Unknown]
  - Musculoskeletal disorder [Unknown]
  - Stress [Unknown]
  - Central nervous system lesion [Unknown]
  - Migraine [Unknown]
  - Weight increased [Unknown]
  - Gastrointestinal motility disorder [Unknown]
  - Abdominal distension [Unknown]
  - Gastric dilatation [Unknown]
  - Constipation [Unknown]
  - Peripheral swelling [Unknown]
  - Intervertebral disc space narrowing [Unknown]
  - Gastrointestinal disorder [Unknown]
  - Menopausal symptoms [Unknown]
  - Haemorrhage [Unknown]
  - Amenorrhoea [Unknown]
  - Gait disturbance [Unknown]
  - Body mass index increased [Unknown]
  - Pain [Unknown]
  - Malaise [Unknown]
  - Multiple allergies [Unknown]
  - Lymphocele [Unknown]
  - Weight abnormal [Unknown]
  - Tinnitus [Unknown]
  - Wrist fracture [Recovered/Resolved with Sequelae]
  - Lymphadenopathy [Recovered/Resolved]
  - Back injury [Recovered/Resolved]
  - COVID-19 [Recovered/Resolved]
  - Joint swelling [Recovered/Resolved]
  - Fall [Recovered/Resolved]
  - Balance disorder [Recovered/Resolved]
  - Flushing [Unknown]
  - Dyspepsia [Unknown]

NARRATIVE: CASE EVENT DATE: 20220401
